FAERS Safety Report 9655635 (Version 2)
Quarter: 2013Q4

REPORT INFORMATION
  Report Type: Spontaneous
  Country: IT (occurrence: IT)
  Receive Date: 20131030
  Receipt Date: 20131105
  Transmission Date: 20140711
  Serious: Yes (Hospitalization)
  Sender: FDA-Public Use
  Company Number: IT-009507513-1310ITA012936

PATIENT
  Age: 52 Year
  Sex: Male

DRUGS (4)
  1. PEGINTRON [Suspect]
     Indication: HEPATITIS C ANTIBODY POSITIVE
     Dosage: 100 MICROGRAM, QW
     Route: 058
     Dates: start: 20130405, end: 20130707
  2. RIBAVIRIN [Interacting]
     Indication: HEPATITIS C ANTIBODY POSITIVE
     Dosage: 1200 MG, DAILY
     Route: 048
     Dates: start: 20130405, end: 20130707
  3. BOCEPREVIR [Interacting]
     Indication: HEPATITIS C ANTIBODY POSITIVE
     Dosage: 2400 MG, QD
     Route: 048
     Dates: start: 20130504, end: 20130707
  4. INDERAL [Concomitant]
     Indication: ESSENTIAL HYPERTENSION
     Dosage: 40 MG, UNK
     Dates: start: 20100629, end: 20131023

REACTIONS (1)
  - Neutropenia [Recovered/Resolved]
